FAERS Safety Report 8256610-7 (Version None)
Quarter: 2012Q2

REPORT INFORMATION
  Report Type: 
  Country: None (occurrence: None)
  Receive Date: 20120403
  Receipt Date: 20120326
  Transmission Date: 20120825
  Serious: Yes (Other)
  Sender: FDA-Public Use
  Company Number: US-ABBOTT-12P-163-0918799-00

PATIENT
  Age: 75 Year
  Sex: Female

DRUGS (11)
  1. METHOTREXATE [Concomitant]
     Indication: RHEUMATOID ARTHRITIS
     Dosage: 5-2.5 MG TABLETS WEEKLY
  2. UNKNOWN STATIN [Concomitant]
     Indication: BLOOD CHOLESTEROL INCREASED
     Dosage: AT BEDTIME
  3. ASPIRIN [Concomitant]
     Indication: PROPHYLAXIS
  4. HUMIRA [Suspect]
     Dates: start: 20120326
  5. VERAPAMIL [Concomitant]
     Indication: HEART RATE INCREASED
  6. MULTIVITAMIN [Concomitant]
     Indication: VITAMIN SUPPLEMENTATION
  7. HUMIRA [Suspect]
     Indication: RHEUMATOID ARTHRITIS
     Dates: start: 20090101, end: 20120316
  8. LOSTATIN [Concomitant]
     Indication: HYPERTENSION
  9. SENOKOT [Concomitant]
     Indication: CONSTIPATION
  10. FOLIC ACID [Concomitant]
     Indication: RHEUMATOID ARTHRITIS
  11. VITAMIN D [Concomitant]
     Indication: MINERAL SUPPLEMENTATION

REACTIONS (8)
  - LUNG NEOPLASM [None]
  - BLOOD CHOLESTEROL INCREASED [None]
  - SYNOVIAL CYST [None]
  - RESPIRATORY TRACT CONGESTION [None]
  - HYPERTENSION [None]
  - HEART RATE INCREASED [None]
  - COUGH [None]
  - EXOSTOSIS [None]
